FAERS Safety Report 7558086-1 (Version None)
Quarter: 2011Q2

REPORT INFORMATION
  Report Type: 
  Country: None (occurrence: None)
  Receive Date: 20110620
  Receipt Date: 20110609
  Transmission Date: 20111010
  Serious: Yes (Life-Threatening)
  Sender: FDA-Public Use
  Company Number: US-UCBSA-011780

PATIENT
  Sex: Female
  Weight: 88.9 kg

DRUGS (13)
  1. KEPPRA [Concomitant]
     Dates: start: 20100419, end: 20100420
  2. LAMICTAL XR [Concomitant]
     Dates: start: 20091015, end: 20091028
  3. LAMICTAL XR [Concomitant]
     Dates: start: 20100120, end: 20100302
  4. LAMICTAL XR [Concomitant]
     Dates: start: 20100303, end: 20100317
  5. LAMICTAL XR [Concomitant]
     Dates: start: 20091029, end: 20091110
  6. LAMICTAL XR [Concomitant]
     Dates: start: 20100318, end: 20100401
  7. LAMICTAL XR [Concomitant]
     Dates: start: 20091125, end: 20100105
  8. LAMICTAL XR [Concomitant]
     Indication: EPILEPSY
     Dates: start: 20091001, end: 20091014
  9. LACOSAMIDE [Suspect]
     Indication: EPILEPSY
     Route: 048
     Dates: start: 20090917, end: 20100601
  10. LAMICTAL XR [Concomitant]
     Dates: start: 20091111, end: 20091124
  11. KEPPRA [Concomitant]
     Indication: EPILEPSY
     Dates: start: 20100421
  12. LAMICTAL XR [Concomitant]
     Dates: start: 20100106, end: 20100119
  13. LAMICTAL XR [Concomitant]
     Dates: start: 20100402

REACTIONS (1)
  - STATUS EPILEPTICUS [None]
